FAERS Safety Report 8533710 (Version 4)
Quarter: 2013Q2

REPORT INFORMATION
  Report Type: Spontaneous
  Country: JP (occurrence: JP)
  Receive Date: 20120427
  Receipt Date: 20130604
  Transmission Date: 20140414
  Serious: Yes (Life-Threatening)
  Sender: FDA-Public Use
  Company Number: JP-B.I. PHARMACEUTICALS,INC./RIDGEFIELD-2012-BP-09599NB

PATIENT
  Age: 79 Year
  Sex: Female

DRUGS (12)
  1. SPIRIVA [Suspect]
     Route: 055
     Dates: start: 20110125, end: 20110125
  2. INTAL [Concomitant]
     Route: 065
  3. SINGULAIR [Concomitant]
     Dosage: 10 MG
     Route: 048
     Dates: start: 20100106
  4. MARZULENE [Concomitant]
     Route: 048
     Dates: start: 20100106
  5. GASTER D [Concomitant]
     Dosage: 40 MG
     Route: 048
     Dates: start: 20100106
  6. MICARDIS [Concomitant]
     Dosage: 80 MG
     Route: 048
     Dates: start: 20100106
  7. HOKUNALIN TAPE [Concomitant]
     Dosage: 2 MG
     Route: 062
     Dates: start: 20100106
  8. ATELEC [Concomitant]
     Dosage: 20 MG
     Route: 048
     Dates: start: 20100106
  9. FLUITRAN [Concomitant]
     Dosage: 2 MG
     Route: 048
     Dates: start: 20101203
  10. GLAKAY [Concomitant]
     Dosage: 30 MG
     Route: 048
     Dates: start: 20100813
  11. ALVESCO [Concomitant]
     Dosage: 800 MCG
     Route: 055
     Dates: start: 20101008
  12. VACCINES [Concomitant]
     Route: 065

REACTIONS (2)
  - Choking sensation [Recovered/Resolved]
  - Wheezing [Recovered/Resolved]
